FAERS Safety Report 4833504-8 (Version None)
Quarter: 2005Q4

REPORT INFORMATION
  Report Type: 
  Country: None (occurrence: None)
  Receive Date: 20051121
  Receipt Date: 20051111
  Transmission Date: 20060501
  Serious: Yes (Other)
  Sender: FDA-Public Use
  Company Number: PHBS2005IE16655

PATIENT
  Age: 51 Year
  Sex: Female

DRUGS (2)
  1. LIPITOR [Concomitant]
  2. FAMVIR [Suspect]
     Dosage: 750 MG / DAY
     Route: 048

REACTIONS (1)
  - NEURALGIA [None]
